FAERS Safety Report 15895649 (Version 2)
Quarter: 2019Q1

REPORT INFORMATION
  Report Type: Report from Study
  Country: FR (occurrence: FR)
  Receive Date: 20190131
  Receipt Date: 20190208
  Transmission Date: 20190417
  Serious: Yes (Life-Threatening, Hospitalization)
  Sender: FDA-Public Use
  Company Number: FR-ROCHE-2254719

PATIENT
  Age: 66 Year
  Sex: Male
  Weight: 83 kg

DRUGS (12)
  1. COBIMETINIB. [Suspect]
     Active Substance: COBIMETINIB
     Indication: PLASMA CELL MYELOMA
     Dosage: DOSE OF LAST COBIMETINIB ADMINISTERED PRIOR TO SERIOUS ADVERSE EVENT ONSET: 40 MG.?DATE OF MOST RECE
     Route: 065
     Dates: start: 20190116
  2. KAYEXALATE [Concomitant]
     Active Substance: SODIUM POLYSTYRENE SULFONATE
     Indication: HYPERKALAEMIA
  3. TAZOCILLINE [Concomitant]
     Active Substance: PIPERACILLIN SODIUM\TAZOBACTAM SODIUM
     Indication: INFECTION PROPHYLAXIS
     Route: 048
     Dates: start: 20190125
  4. VENETOCLAX. [Suspect]
     Active Substance: VENETOCLAX
     Indication: PLASMA CELL MYELOMA
     Dosage: DOSE OF LAST VENETOCLAX ADMINISTERED PRIOR TO SERIOUS ADVERSE EVENT ONSET: 800 MG.?DATE OF MOST RECE
     Route: 048
     Dates: start: 20190116
  5. AMOXICILLIN. [Concomitant]
     Active Substance: AMOXICILLIN
     Indication: INFECTION PROPHYLAXIS
     Route: 048
     Dates: start: 20190109
  6. PARACETAMOL [Concomitant]
     Active Substance: ACETAMINOPHEN
     Indication: TUMOUR PAIN
     Route: 048
     Dates: start: 20181210
  7. SODIUM CHLORIDE. [Concomitant]
     Active Substance: SODIUM CHLORIDE
     Indication: FLUID OVERLOAD
     Route: 042
     Dates: start: 20190125
  8. PLATELETS [Concomitant]
     Active Substance: HUMAN PLATELET, ALLOGENIC
     Indication: THROMBOCYTOPENIA
     Dosage: TRANSFUSION
     Route: 042
     Dates: start: 20190125, end: 20190125
  9. SODIUM CHLORIDE. [Concomitant]
     Active Substance: SODIUM CHLORIDE
     Indication: ACUTE KIDNEY INJURY
  10. KAYEXALATE [Concomitant]
     Active Substance: SODIUM POLYSTYRENE SULFONATE
     Indication: ACUTE KIDNEY INJURY
     Route: 048
     Dates: start: 20190125
  11. OXYCODONE HYDROCHLORIDE. [Concomitant]
     Active Substance: OXYCODONE HYDROCHLORIDE
     Indication: TUMOUR PAIN
     Route: 048
     Dates: start: 20190115
  12. FASTURTEC [Concomitant]
     Active Substance: RASBURICASE
     Indication: ACUTE KIDNEY INJURY
     Route: 042
     Dates: start: 20190125

REACTIONS (1)
  - Tumour lysis syndrome [Not Recovered/Not Resolved]

NARRATIVE: CASE EVENT DATE: 20190125
